FAERS Safety Report 8887512 (Version 1)
Quarter: 2012Q4

REPORT INFORMATION
  Report Type: Spontaneous
  Country: US (occurrence: None)
  Receive Date: 20121101
  Receipt Date: 20121101
  Transmission Date: 20130627
  Serious: Yes (Hospitalization)
  Sender: FDA-Public Use
  Company Number: None

PATIENT
  Age: 86 Year
  Sex: Female
  Weight: 72.7 kg

DRUGS (9)
  1. COUMADIN [Suspect]
     Dosage: 5MG SUNTWTHSAT PO
CHRONIC
     Route: 048
  2. COUMADIN [Suspect]
     Dosage: 10MG MF PO
CHRONIC
     Route: 048
  3. BIOTIN FORTE [Concomitant]
  4. LISINOPRIL [Concomitant]
  5. GLUCOSAMINE HCL [Concomitant]
  6. RESTASIS [Concomitant]
  7. CELEXA [Concomitant]
  8. SPIRIVA [Concomitant]
  9. VIT D [Concomitant]

REACTIONS (6)
  - Mucosal haemorrhage [None]
  - Anaemia [None]
  - International normalised ratio increased [None]
  - Fatigue [None]
  - Dizziness [None]
  - Syncope [None]
